FAERS Safety Report 6086714-9 (Version None)
Quarter: 2009Q1

REPORT INFORMATION
  Report Type: 
  Country: None (occurrence: None)
  Receive Date: 20090223
  Receipt Date: 20090216
  Transmission Date: 20090719
  Serious: Yes (Other)
  Sender: FDA-Public Use
  Company Number: PHEH2009US01420

PATIENT
  Sex: Male

DRUGS (2)
  1. EXJADE [Suspect]
     Dosage: UNK
     Dates: start: 20070101
  2. EXJADE [Suspect]
     Dosage: 2500 MG, QD
     Dates: start: 20081001

REACTIONS (2)
  - EAR DISORDER [None]
  - INFECTION [None]
